FAERS Safety Report 11149724 (Version 1)
Quarter: 2015Q2

REPORT INFORMATION
  Report Type: Spontaneous
  Country: NZ (occurrence: NZ)
  Receive Date: 20150529
  Receipt Date: 20150529
  Transmission Date: 20150821
  Serious: Yes (Hospitalization)
  Sender: FDA-Public Use
  Company Number: NZ-ABBVIE-15K-118-1374930-00

PATIENT
  Age: 46 Year
  Sex: Male

DRUGS (1)
  1. HUMIRA [Suspect]
     Active Substance: ADALIMUMAB
     Indication: PSORIATIC ARTHROPATHY
     Route: 065
     Dates: start: 20110921, end: 20150408

REACTIONS (8)
  - Hepatic ischaemia [Recovering/Resolving]
  - Cardiac disorder [Recovered/Resolved]
  - Renal ischaemia [Recovering/Resolving]
  - Atrial fibrillation [Recovering/Resolving]
  - Pulmonary embolism [Recovering/Resolving]
  - Pulmonary infarction [Recovering/Resolving]
  - Acute myocardial infarction [Recovering/Resolving]
  - Atrial fibrillation [Unknown]

NARRATIVE: CASE EVENT DATE: 201403
